FAERS Safety Report 8342311-3 (Version None)
Quarter: 2012Q2

REPORT INFORMATION
  Report Type: 
  Country: None (occurrence: None)
  Receive Date: 20120507
  Receipt Date: 20120503
  Transmission Date: 20120825
  Serious: Yes (Hospitalization)
  Sender: FDA-Public Use
  Company Number: US-AMGEN-USASP2011052622

PATIENT
  Sex: Female

DRUGS (1)
  1. ENBREL [Suspect]
     Indication: RHEUMATOID ARTHRITIS
     Dosage: 50 MG, QWK
     Dates: start: 20010101

REACTIONS (6)
  - OEDEMA PERIPHERAL [None]
  - NODULE [None]
  - HIP ARTHROPLASTY [None]
  - PAIN IN EXTREMITY [None]
  - GOUT [None]
  - MOBILITY DECREASED [None]
